FAERS Safety Report 16975756 (Version 1)
Quarter: 2019Q4

REPORT INFORMATION
  Report Type: Spontaneous
  Country: FR (occurrence: FR)
  Receive Date: 20191030
  Receipt Date: 20191030
  Transmission Date: 20200122
  Serious: Yes (Hospitalization)
  Sender: FDA-Public Use
  Company Number: FR-PFIZER INC-2019464269

PATIENT
  Sex: Male

DRUGS (5)
  1. REVLIMID [Suspect]
     Active Substance: LENALIDOMIDE
     Indication: PLASMA CELL MYELOMA
     Dosage: 21 DF, UNK
     Route: 048
     Dates: start: 201503
  2. CALCIDIA [Suspect]
     Active Substance: CALCIUM CARBONATE
     Dosage: 1 DF, 1X/DAY
     Route: 048
  3. SERTRALINE [Suspect]
     Active Substance: SERTRALINE HYDROCHLORIDE
     Indication: DEPRESSION
     Dosage: 200 MG, 1X/DAY
     Route: 048
  4. FUMAFER [Suspect]
     Active Substance: FERROUS FUMARATE
     Dosage: 3 DF, 1X/DAY
     Route: 048
  5. FOLIC ACID. [Suspect]
     Active Substance: FOLIC ACID
     Indication: VITAMIN SUPPLEMENTATION
     Dosage: 15 MG, 1X/DAY
     Route: 048

REACTIONS (2)
  - Diarrhoea [Recovering/Resolving]
  - Acute kidney injury [Recovering/Resolving]

NARRATIVE: CASE EVENT DATE: 2016
